FAERS Safety Report 6518260-X (Version None)
Quarter: 2009Q4

REPORT INFORMATION
  Report Type: 
  Country: None (occurrence: None)
  Receive Date: 20091223
  Receipt Date: 20091223
  Transmission Date: 20100525
  Serious: Yes (Life-Threatening, Hospitalization, Other)
  Sender: FDA-Public Use
  Company Number: None

PATIENT
  Sex: Female
  Weight: 71.6683 kg

DRUGS (3)
  1. LEVAQUIN [Suspect]
     Indication: COUGH
     Dosage: LEVAQUIN 500 MG
     Dates: start: 20091121
  2. LEVAQUIN [Suspect]
     Indication: VOMITING
     Dosage: LEVAQUIN 500 MG
     Dates: start: 20091121
  3. HYDROCODONE BITARTRATE + ACETAMINOPHEN [Suspect]
     Indication: URINARY TRACT INFECTION
     Dosage: HYDROCODONE 500MG

REACTIONS (6)
  - CIRCULATORY COLLAPSE [None]
  - DYSPNOEA [None]
  - DYSSTASIA [None]
  - RASH ERYTHEMATOUS [None]
  - RASH GENERALISED [None]
  - URTICARIA [None]
